FAERS Safety Report 15085201 (Version 1)
Quarter: 2018Q2

REPORT INFORMATION
  Report Type: Not Available
  Country: DE (occurrence: DE)
  Receive Date: 20180628
  Receipt Date: 20180628
  Transmission Date: 20180711
  Serious: Yes (Death, Other)
  Sender: FDA-Public Use
  Company Number: DE-SYNTHON BV-NL01PV18_47061

PATIENT
  Sex: Male

DRUGS (14)
  1. ALLOPURINOL. [Suspect]
     Active Substance: ALLOPURINOL
     Dosage: UNK
  2. BISOPROLOL [Suspect]
     Active Substance: BISOPROLOL
     Dosage: UNK
  3. LANTUS [Suspect]
     Active Substance: INSULIN GLARGINE
     Dosage: UNK
  4. LEVOMEPROMAZIN                     /00038601/ [Suspect]
     Active Substance: LEVOMEPROMAZINE
     Dosage: UNK
  5. TAMSULOSIN [Suspect]
     Active Substance: TAMSULOSIN
     Dosage: UNK
  6. FALITHROM [Suspect]
     Active Substance: PHENPROCOUMON
     Dosage: UNK
  7. METFORMIN [Suspect]
     Active Substance: METFORMIN HYDROCHLORIDE
     Dosage: UNK
  8. DONEPEZIL. [Suspect]
     Active Substance: DONEPEZIL
     Dosage: UNK
  9. TOREM                              /01036501/ [Suspect]
     Active Substance: TORSEMIDE
     Dosage: UNK
  10. APIDRA [Suspect]
     Active Substance: INSULIN GLULISINE
     Dosage: UNK
  11. CANDECOR COMP [Suspect]
     Active Substance: CANDESARTAN CILEXETIL\HYDROCHLOROTHIAZIDE
     Dosage: UNK
  12. RISPERDAL [Suspect]
     Active Substance: RISPERIDONE
     Dosage: UNK
  13. SIMVASTATIN. [Suspect]
     Active Substance: SIMVASTATIN
     Dosage: UNK
  14. SEROQUEL [Suspect]
     Active Substance: QUETIAPINE FUMARATE
     Dosage: UNK

REACTIONS (8)
  - Haematoma [Unknown]
  - Contraindicated product administered [Unknown]
  - Cognitive disorder [Unknown]
  - Gastrointestinal haemorrhage [Unknown]
  - Urinary incontinence [Unknown]
  - Blood glucose fluctuation [Unknown]
  - Renal failure [Unknown]
  - Balance disorder [Unknown]
